FAERS Safety Report 14280058 (Version 13)
Quarter: 2018Q2

REPORT INFORMATION
  Report Type: Spontaneous
  Country: US (occurrence: US)
  Receive Date: 20171212
  Receipt Date: 20180507
  Transmission Date: 20180711
  Serious: Yes (Hospitalization, Other)
  Sender: FDA-Public Use
  Company Number: US-ACTELION-A-US2017-164033

PATIENT
  Age: 61 Year
  Sex: Male
  Weight: 73.47 kg

DRUGS (22)
  1. OMEPRAZOLE. [Concomitant]
     Active Substance: OMEPRAZOLE
  2. VITAMIN D3 [Concomitant]
     Active Substance: CHOLECALCIFEROL
  3. VANCOMYCIN [Suspect]
     Active Substance: VANCOMYCIN
     Indication: PRODUCT USED FOR UNKNOWN INDICATION
     Dosage: 1 G, Q12HRS
     Route: 042
  4. CELLCEPT [Concomitant]
     Active Substance: MYCOPHENOLATE MOFETIL\MYCOPHENOLATE MOFETIL HYDROCHLORIDE
  5. PRILOSEC [Concomitant]
     Active Substance: OMEPRAZOLE MAGNESIUM
  6. SPIRONOLACTONE. [Concomitant]
     Active Substance: SPIRONOLACTONE
  7. AMBRISENTAN [Suspect]
     Active Substance: AMBRISENTAN
     Indication: PULMONARY HYPERTENSION
     Dosage: 5 MG, QD
     Route: 048
     Dates: start: 20171116
  8. ELIQUIS [Concomitant]
     Active Substance: APIXABAN
  9. CHOLECALCIFEROL [Concomitant]
     Active Substance: CHOLECALCIFEROL
  10. AMBIEN [Concomitant]
     Active Substance: ZOLPIDEM TARTRATE
  11. FUROSEMIDE. [Concomitant]
     Active Substance: FUROSEMIDE
  12. VELETRI [Suspect]
     Active Substance: EPOPROSTENOL
     Dosage: 36 NG/KG, PER MIN
     Route: 042
  13. FERROUS SULFATE. [Concomitant]
     Active Substance: FERROUS SULFATE
  14. LORATADINE. [Concomitant]
     Active Substance: LORATADINE
  15. ZOLPIDEM [Concomitant]
     Active Substance: ZOLPIDEM\ZOLPIDEM TARTRATE
  16. CALCIUM CARBONATE. [Concomitant]
     Active Substance: CALCIUM CARBONATE
  17. ADCIRCA [Concomitant]
     Active Substance: TADALAFIL
  18. REMODULIN [Concomitant]
     Active Substance: TREPROSTINIL
  19. POTASSIUM CHLORIDE. [Concomitant]
     Active Substance: POTASSIUM CHLORIDE
  20. MYCOPHENOLATE [Concomitant]
     Active Substance: MYCOPHENOLIC ACID
  21. VELETRI [Suspect]
     Active Substance: EPOPROSTENOL
     Indication: PULMONARY HYPERTENSION
     Dosage: 40 NG/KG, PER MIN
     Route: 042
  22. CLARITIN [Concomitant]
     Active Substance: LORATADINE

REACTIONS (32)
  - Fatigue [Unknown]
  - Pain [Unknown]
  - Pain in jaw [Recovering/Resolving]
  - Transplant evaluation [Unknown]
  - Feeling abnormal [Unknown]
  - Heart rate increased [Unknown]
  - Hypotension [Unknown]
  - Diarrhoea [Not Recovered/Not Resolved]
  - Cough [Unknown]
  - Body temperature abnormal [Not Recovered/Not Resolved]
  - Rash erythematous [Recovering/Resolving]
  - Pyrexia [Unknown]
  - Device related infection [Unknown]
  - Catheter site rash [Not Recovered/Not Resolved]
  - Bone pain [Unknown]
  - Joint swelling [Recovering/Resolving]
  - Dizziness exertional [Recovered/Resolved]
  - Unevaluable event [Not Recovered/Not Resolved]
  - Iron deficiency anaemia [Unknown]
  - Catheter site erythema [Not Recovered/Not Resolved]
  - Arthralgia [Unknown]
  - Oedema peripheral [Unknown]
  - Dizziness [Unknown]
  - Cardiac failure [Unknown]
  - Oxygen consumption increased [Unknown]
  - Breath sounds abnormal [Not Recovered/Not Resolved]
  - Dysgraphia [Unknown]
  - Atrial fibrillation [Unknown]
  - Dyspnoea exertional [Recovering/Resolving]
  - Catheter site inflammation [Not Recovered/Not Resolved]
  - Myalgia [Recovering/Resolving]
  - Headache [Unknown]

NARRATIVE: CASE EVENT DATE: 20171118
